FAERS Safety Report 9742843 (Version 4)
Quarter: 2014Q1

REPORT INFORMATION
  Report Type: Spontaneous
  Country: JP (occurrence: JP)
  Receive Date: 20131210
  Receipt Date: 20140220
  Transmission Date: 20141002
  Serious: Yes (Life-Threatening, Hospitalization, Other)
  Sender: FDA-Public Use
  Company Number: JP-PFIZER INC-2013347057

PATIENT
  Age: 68 Year
  Sex: Male
  Weight: 59 kg

DRUGS (6)
  1. JZOLOFT [Suspect]
     Indication: DEPRESSION
     Dosage: 25 MG, DAILY
     Route: 048
     Dates: start: 20131113, end: 20131117
  2. SERENACE [Suspect]
     Indication: DELIRIUM
     Dosage: 5 MG, 1X/DAY
     Route: 042
     Dates: start: 20131116, end: 20131117
  3. SERENACE [Suspect]
     Indication: MANIA
  4. TETRAMIDE [Concomitant]
     Indication: DEPRESSION
     Dosage: 10 MG, 1X/DAY
     Route: 048
     Dates: start: 20131113, end: 20131117
  5. ETIZOLAM [Concomitant]
     Indication: DEPRESSION
     Dosage: 0.5 MG, 4X/DAY
     Route: 048
     Dates: start: 20120913, end: 20131002
  6. ETIZOLAM [Concomitant]
     Dosage: 1 MG, 3X/DAY
     Route: 048
     Dates: start: 20131003, end: 20131031

REACTIONS (1)
  - Neuroleptic malignant syndrome [Recovering/Resolving]
